FAERS Safety Report 6294572-2 (Version None)
Quarter: 2009Q3

REPORT INFORMATION
  Report Type: 
  Country: None (occurrence: None)
  Receive Date: 20090803
  Receipt Date: 20090609
  Transmission Date: 20100115
  Serious: Yes (Hospitalization, Other)
  Sender: FDA-Public Use
  Company Number: US-PURDUE-USA-2009-0039024

PATIENT
  Sex: Male

DRUGS (2)
  1. OXYCONTIN [Suspect]
     Indication: PAIN
     Dosage: 40 MG, TID
     Dates: start: 20020913, end: 20060501
  2. IBUPROFEN [Concomitant]
     Dosage: 800 MG, UNK

REACTIONS (3)
  - DRUG DEPENDENCE [None]
  - HEADACHE [None]
  - HEPATITIS C [None]
